FAERS Safety Report 7760750-6 (Version None)
Quarter: 2011Q3

REPORT INFORMATION
  Report Type: 
  Country: None (occurrence: None)
  Receive Date: 20110919
  Receipt Date: 20110908
  Transmission Date: 20111222
  Serious: Yes (Other)
  Sender: FDA-Public Use
  Company Number: US-ASTRAZENECA-2011SE54227

PATIENT
  Age: 62 Year
  Sex: Female
  Weight: 64.4 kg

DRUGS (5)
  1. NOVOLOG [Concomitant]
     Indication: DIABETES MELLITUS
  2. NORCO [Concomitant]
     Indication: PAIN
  3. IBUPROFEN [Concomitant]
     Indication: PAIN
  4. DOXEPIN [Concomitant]
     Indication: SLEEP DISORDER
  5. NEXIUM [Suspect]
     Indication: DYSPEPSIA
     Route: 048

REACTIONS (4)
  - ANKLE FRACTURE [None]
  - WRIST FRACTURE [None]
  - DRUG INEFFECTIVE [None]
  - FALL [None]
